FAERS Safety Report 15230114 (Version 1)
Quarter: 2018Q3

REPORT INFORMATION
  Report Type: Spontaneous
  Country: US (occurrence: US)
  Receive Date: 20180802
  Receipt Date: 20180802
  Transmission Date: 20181010
  Serious: Yes (Other)
  Sender: FDA-Public Use
  Company Number: US-ACCORD-065266

PATIENT
  Age: 54 Year
  Sex: Female
  Weight: 134.72 kg

DRUGS (11)
  1. HERCEPTIN [Suspect]
     Active Substance: TRASTUZUMAB
     Indication: BREAST CANCER
  2. LORAZEPAM. [Concomitant]
     Active Substance: LORAZEPAM
     Dosage: STRENGTH: 0.5 MG?TAKE 1 TABLET BY MOUTH EVERY 6 HOURS AS NEEDED
     Route: 048
  3. PROCHLORPERAZINE. [Concomitant]
     Active Substance: PROCHLORPERAZINE
     Indication: NAUSEA
     Dosage: STRENGTH: 10 MG?TAKE 1 TABLET BY MOUTH EVERY 6 HOURS AS NEEDED
     Route: 048
  4. DOCETAXEL ACCORD [Suspect]
     Active Substance: DOCETAXEL
     Indication: BREAST CANCER
     Dates: start: 20150403, end: 20150707
  5. DEXAMETHASONE. [Concomitant]
     Active Substance: DEXAMETHASONE
     Dosage: STRENGTH: 4 MG?TAKE 2 TABLETS BY MOUTH IN AM AND DINNER THE DAY BEFORE AND THE DAY AFTER OF THE DAY
     Route: 048
  6. HYDROCHLOROTHIAZIDE/TRIAMTERENE [Concomitant]
     Dosage: STRENGTH: 37.5?25 MG
     Route: 048
  7. ONDANSETRON [Concomitant]
     Active Substance: ONDANSETRON
     Indication: NAUSEA
     Dosage: STRENGTH: 8 MG?TAKE 1 TABLET BY MOUTH EVERY 8 HOURS AS NEEDED
     Route: 048
  8. OXYCODONE/OXYCODONE HYDROCHLORIDE/OXYCODONE PECTINATE/OXYCODONE TEREPHTHALATE [Concomitant]
     Indication: PAIN
     Dosage: STRENGTH: 5 MG IMMEDIATE RELEASE TABLET?TAKE 1 TABLET PO Q 4?6 HOURS PRN
     Route: 048
  9. PARAPLATIN [Suspect]
     Active Substance: CARBOPLATIN
     Indication: BREAST CANCER
     Dates: start: 20150403, end: 20150707
  10. LIDOCAINE/PRILOCAINE [Concomitant]
     Dosage: STRENGTH: 2.5 ? 2.5%
  11. PEGFILGRASTIM [Concomitant]
     Active Substance: PEGFILGRASTIM
     Dosage: STRENGTH: 6 MG/0.6 ML
     Route: 058

REACTIONS (1)
  - Alopecia [Not Recovered/Not Resolved]

NARRATIVE: CASE EVENT DATE: 201601
